FAERS Safety Report 6838071-5 (Version None)
Quarter: 2010Q3

REPORT INFORMATION
  Report Type: 
  Country: None (occurrence: None)
  Receive Date: 20100713
  Receipt Date: 20070529
  Transmission Date: 20110219
  Serious: No
  Sender: FDA-Public Use
  Company Number: US-PFIZER INC-2007045933

PATIENT
  Sex: Female
  Weight: 71.7 kg

DRUGS (3)
  1. CHANTIX [Suspect]
     Indication: SMOKING CESSATION THERAPY
     Dates: start: 20070501
  2. CYMBALTA [Concomitant]
  3. ALPRAZOLAM [Concomitant]

REACTIONS (4)
  - BONE PAIN [None]
  - DYSGEUSIA [None]
  - INFLUENZA LIKE ILLNESS [None]
  - NAUSEA [None]
